FAERS Safety Report 5357853-2 (Version None)
Quarter: 2007Q2

REPORT INFORMATION
  Report Type: 
  Country: None (occurrence: None)
  Receive Date: 20070530
  Receipt Date: 20070220
  Transmission Date: 20071010
  Serious: Yes (Hospitalization, Other)
  Sender: FDA-Public Use
  Company Number: US200701002767

PATIENT
  Age: 37 Year
  Sex: Male
  Weight: 111.1 kg

DRUGS (5)
  1. ZYPREXA [Suspect]
     Dosage: 7.5 MG
     Dates: start: 19990210, end: 19990212
  2. ZYPREXA [Suspect]
     Dosage: 7.5 MG
     Dates: start: 19990222, end: 20060306
  3. DIVALPROEX (VALPROATE SEMISODIUM) [Concomitant]
  4. CITALOPRAM HYDROBROMIDE [Concomitant]
  5. TRAZODONE HCL [Concomitant]

REACTIONS (7)
  - BLOOD CHOLESTEROL INCREASED [None]
  - DIABETES MELLITUS [None]
  - DIABETIC KETOACIDOSIS [None]
  - HYPERTENSION [None]
  - METABOLIC DISORDER [None]
  - PRESCRIBED OVERDOSE [None]
  - VISION BLURRED [None]
